FAERS Safety Report 10403666 (Version 1)
Quarter: 2014Q3

REPORT INFORMATION
  Report Type: Spontaneous
  Country: US (occurrence: US)
  Receive Date: 20140822
  Receipt Date: 20140822
  Transmission Date: 20150326
  Serious: No
  Sender: FDA-Public Use
  Company Number: US-TARO-2014P1003995

PATIENT
  Age: 73 Year
  Sex: Female
  Weight: 67.13 kg

DRUGS (6)
  1. GLUCOSAMINE [Concomitant]
     Active Substance: GLUCOSAMINE
  2. TRAMADOL [Concomitant]
     Active Substance: TRAMADOL
  3. BETA CAROTENE [Concomitant]
  4. CLOBETASOL PROPIONATE CREAM USP 0.05% [Suspect]
     Active Substance: CLOBETASOL PROPIONATE
     Indication: GRANULOMA ANNULARE
     Dosage: BID
     Route: 061
     Dates: start: 20140428, end: 20140503
  5. HYDROCHLOROTHIAZIDE. [Concomitant]
     Active Substance: HYDROCHLOROTHIAZIDE
  6. HAIR SKIN AND NAILS VITAMIN [Concomitant]

REACTIONS (3)
  - Application site pruritus [Recovered/Resolved]
  - Rash [Not Recovered/Not Resolved]
  - Application site pain [Recovered/Resolved]

NARRATIVE: CASE EVENT DATE: 20140428
